FAERS Safety Report 19190725 (Version 2)
Quarter: 2021Q2

REPORT INFORMATION
  Report Type: Spontaneous
  Country: ES (occurrence: ES)
  Receive Date: 20210428
  Receipt Date: 20210521
  Transmission Date: 20210717
  Serious: Yes (Hospitalization, Other)
  Sender: FDA-Public Use
  Company Number: ES-SA-2021SA136972

PATIENT
  Sex: Female

DRUGS (1)
  1. LANTUS [Suspect]
     Active Substance: INSULIN GLARGINE
     Indication: TYPE 2 DIABETES MELLITUS
     Dosage: 18 IU
     Route: 058

REACTIONS (4)
  - Diabetic foot [Unknown]
  - Product quality issue [Recovering/Resolving]
  - Device occlusion [Recovering/Resolving]
  - Blood glucose increased [Recovering/Resolving]
